FAERS Safety Report 8799297 (Version 1)
Quarter: 2012Q4

REPORT INFORMATION
  Report Type: 
  Country: DK (occurrence: GB)
  Receive Date: 20120920
  Receipt Date: 20120920
  Transmission Date: 20130627
  Serious: Yes (Other)
  Sender: FDA-Public Use
  Company Number: GB-FRI-1000038720

PATIENT
  Age: 57 Year
  Sex: Female

DRUGS (6)
  1. CITALOPRAM [Suspect]
     Indication: DEPRESSION
     Dosage: 40 mg
     Route: 048
  2. CITALOPRAM [Suspect]
     Indication: ANXIETY
     Dosage: 30 mg
     Route: 048
  3. CITALOPRAM [Suspect]
     Dosage: 20 mg
     Route: 048
  4. CITALOPRAM [Suspect]
     Dosage: 10 mg
     Dates: end: 20120903
  5. LANSOPRAZOLE [Concomitant]
     Indication: HIATUS HERNIA
  6. SIMVASTATIN [Concomitant]

REACTIONS (7)
  - Withdrawal syndrome [Recovered/Resolved]
  - Diarrhoea [Recovered/Resolved]
  - Pain [Recovered/Resolved]
  - Headache [Recovered/Resolved]
  - Night sweats [Recovered/Resolved]
  - Chills [Recovered/Resolved]
  - Cold sweat [Recovered/Resolved]
